FAERS Safety Report 14914528 (Version 2)
Quarter: 2018Q2

REPORT INFORMATION
  Report Type: Spontaneous
  Country: US (occurrence: US)
  Receive Date: 20180518
  Receipt Date: 20180620
  Transmission Date: 20180711
  Serious: No
  Sender: FDA-Public Use
  Company Number: PHEH2018US018928

PATIENT
  Sex: Male

DRUGS (2)
  1. AFINITOR [Suspect]
     Active Substance: EVEROLIMUS
     Indication: PRODUCT USED FOR UNKNOWN INDICATION
     Dosage: 5 MG, QD
     Route: 048
  2. LENVATINIB [Concomitant]
     Active Substance: LENVATINIB
     Indication: RENAL NEOPLASM
     Dosage: 24 MG, QD
     Route: 048
     Dates: start: 20180418

REACTIONS (5)
  - Cough [Recovering/Resolving]
  - Rib fracture [Recovering/Resolving]
  - Insomnia [Unknown]
  - Feeling abnormal [Unknown]
  - Pain [Recovered/Resolved]
